FAERS Safety Report 9793433 (Version 2)
Quarter: 2014Q1

REPORT INFORMATION
  Report Type: Spontaneous
  Country: US (occurrence: US)
  Receive Date: 20140102
  Receipt Date: 20140205
  Transmission Date: 20141002
  Serious: No
  Sender: FDA-Public Use
  Company Number: US-009507513-1312USA009729

PATIENT
  Age: 63 Year
  Sex: Female
  Weight: 66.67 kg

DRUGS (4)
  1. OXYTROL FOR WOMEN [Suspect]
     Indication: HYPERTONIC BLADDER
     Dosage: UNK, UNKNOWN
     Route: 062
     Dates: start: 201309, end: 201311
  2. HYDROCHLOROTHIAZIDE [Concomitant]
     Indication: HYPERTENSION
     Dosage: UNK, UNKNOWN
  3. CALTRATE + D [Concomitant]
     Indication: OSTEOPENIA
     Dosage: UNK, UNKNOWN
  4. VIVELLE (ESTRADIOL) [Concomitant]
     Indication: HYSTERECTOMY
     Dosage: UNK, UNKNOWN

REACTIONS (1)
  - Dermatitis allergic [Recovered/Resolved]
